FAERS Safety Report 25573897 (Version 3)
Quarter: 2025Q3

REPORT INFORMATION
  Report Type: Spontaneous
  Country: EU (occurrence: EU)
  Receive Date: 20250717
  Receipt Date: 20250728
  Transmission Date: 20251020
  Serious: Yes (Life-Threatening, Hospitalization, Other)
  Sender: SANOFI AVENTIS
  Company Number: EU-SANOFI-02588916

PATIENT
  Age: 37 Year
  Sex: Male
  Weight: 70 kg

DRUGS (1)
  1. DUPIXENT [Suspect]
     Active Substance: DUPILUMAB
     Indication: Dermatitis atopic
     Dosage: 300 MG, QOW
     Route: 058
     Dates: start: 20240529, end: 20240826

REACTIONS (1)
  - Hodgkin^s disease [Not Recovered/Not Resolved]

NARRATIVE: CASE EVENT DATE: 20240805
